FAERS Safety Report 7378091-8 (Version None)
Quarter: 2011Q1

REPORT INFORMATION
  Report Type: 
  Country: None (occurrence: None)
  Receive Date: 20110328
  Receipt Date: 20110321
  Transmission Date: 20110831
  Serious: Yes (Other)
  Sender: FDA-Public Use
  Company Number: FR-SANOFI-AVENTIS-2011SA017621

PATIENT
  Age: 69 Year
  Sex: Female

DRUGS (5)
  1. LANTUS [Suspect]
     Route: 058
  2. JANUVIA [Concomitant]
     Route: 048
  3. NEBIVOLOL HCL [Suspect]
     Route: 048
     Dates: start: 20070101
  4. MEDIATOR [Suspect]
     Route: 048
     Dates: start: 19950701, end: 20091101
  5. APIDRA [Concomitant]
     Route: 058

REACTIONS (2)
  - DYSPNOEA [None]
  - CHEST PAIN [None]
